FAERS Safety Report 11538349 (Version 1)
Quarter: 2015Q3

REPORT INFORMATION
  Report Type: Report from Study
  Country: DE (occurrence: DE)
  Receive Date: 20150922
  Receipt Date: 20150922
  Transmission Date: 20151125
  Serious: Yes (Death, Other)
  Sender: FDA-Public Use
  Company Number: DE-BAXTER-2015BAX051949

PATIENT
  Age: 79 Year
  Sex: Female

DRUGS (6)
  1. VINCRISTINE [Suspect]
     Active Substance: VINCRISTINE
     Indication: DISEASE PROGRESSION
     Dosage: 50 PERCENT OF INITIAL DOSE
     Route: 065
  2. CYCLOPHOSPHAMID TROCKENSUBSTANZ 2 G BAXTER ONCOLOGY [Suspect]
     Active Substance: CYCLOPHOSPHAMIDE
     Indication: DISEASE PROGRESSION
     Dosage: 50 PERCENT OF INITIAL DOSE
     Route: 042
  3. CYCLOPHOSPHAMID TROCKENSUBSTANZ 2 G BAXTER ONCOLOGY [Suspect]
     Active Substance: CYCLOPHOSPHAMIDE
     Indication: PHAEOCHROMOCYTOMA MALIGNANT
     Route: 042
  4. DACARBAZINE. [Suspect]
     Active Substance: DACARBAZINE
     Indication: PHAEOCHROMOCYTOMA MALIGNANT
     Route: 065
  5. VINCRISTINE [Suspect]
     Active Substance: VINCRISTINE
     Indication: PHAEOCHROMOCYTOMA MALIGNANT
     Route: 065
  6. DACARBAZINE. [Suspect]
     Active Substance: DACARBAZINE
     Indication: DISEASE PROGRESSION
     Dosage: 50 PERCENT OF INITIAL DOSE
     Route: 065

REACTIONS (7)
  - Vomiting [Unknown]
  - Infection [Unknown]
  - Fatigue [Unknown]
  - Death [Fatal]
  - Musculoskeletal pain [Unknown]
  - Pancytopenia [Unknown]
  - Disease progression [Unknown]
